FAERS Safety Report 8451438-7 (Version None)
Quarter: 2012Q2

REPORT INFORMATION
  Report Type: 
  Country: None (occurrence: None)
  Receive Date: 20120620
  Receipt Date: 20120229
  Transmission Date: 20120825
  Serious: No
  Sender: FDA-Public Use
  Company Number: US-VERTEX PHARMACEUTICALS INC.-AE-2012-002968

PATIENT
  Sex: Female
  Weight: 82.628 kg

DRUGS (11)
  1. ZOLPIDEM [Concomitant]
     Route: 048
  2. ALBUTEROL [Concomitant]
     Indication: ASTHMA
  3. RIBAVIRIN [Concomitant]
     Indication: HEPATITIS C
     Route: 048
     Dates: start: 20111230
  4. INCIVEK [Suspect]
     Indication: HEPATITIS C
     Route: 048
     Dates: start: 20111230
  5. SERTRALINE HYDROCHLORIDE [Concomitant]
     Indication: DEPRESSION
     Route: 048
  6. IBUPROFEN [Concomitant]
     Indication: PAIN
     Route: 048
  7. ASPIRIN [Concomitant]
     Route: 048
  8. PEGASYS [Concomitant]
     Indication: HEPATITIS C
     Dates: start: 20111230
  9. ENALAPRIL MALEATE [Concomitant]
     Indication: HYPERTENSION
     Route: 048
  10. LANTUS [Concomitant]
     Indication: DIABETES MELLITUS
     Route: 058
  11. HUMALOG [Concomitant]
     Indication: DIABETES MELLITUS
     Route: 058

REACTIONS (2)
  - RASH ERYTHEMATOUS [None]
  - CONTUSION [None]
